FAERS Safety Report 4600289-X (Version None)
Quarter: 2005Q1

REPORT INFORMATION
  Report Type: 
  Country: None (occurrence: None)
  Receive Date: 20050303
  Receipt Date: 20050210
  Transmission Date: 20050727
  Serious: Yes (Death, Life-Threatening, Other)
  Sender: FDA-Public Use
  Company Number: JP_050205772

PATIENT
  Age: 52 Year
  Sex: Male
  Weight: 60 kg

DRUGS (6)
  1. ZYPREXA [Suspect]
     Indication: SCHIZOPHRENIA
     Dosage: 10 MG DAY
     Route: 048
     Dates: start: 20041216, end: 20050111
  2. CHLORPROMAZINE HCL [Concomitant]
  3. ROHYPNOL (FLUNITRAZEPAM EG) [Concomitant]
  4. PURSENNID [Concomitant]
  5. DIAZEPAM [Concomitant]
  6. UBRETID             (DISTIGMINE BROMIDE) [Concomitant]

REACTIONS (7)
  - CARDIO-RESPIRATORY ARREST [None]
  - COMA [None]
  - DRUG INTERACTION [None]
  - DYSPHAGIA [None]
  - HYPOXIC ENCEPHALOPATHY [None]
  - INJURY ASPHYXIATION [None]
  - VOMITING [None]
